FAERS Safety Report 5239331-4 (Version None)
Quarter: 2007Q1

REPORT INFORMATION
  Report Type: 
  Country: None (occurrence: None)
  Receive Date: 20070213
  Receipt Date: 20070213
  Transmission Date: 20070707
  Serious: Yes (Hospitalization)
  Sender: FDA-Public Use
  Company Number: None

PATIENT
  Age: 74 Year
  Sex: Male
  Weight: 62.5964 kg

DRUGS (16)
  1. WARFARIN SODIUM [Suspect]
     Indication: ATRIAL FIBRILLATION
     Dosage: 5 MG DAILY PO
     Route: 048
     Dates: start: 20061001, end: 20070212
  2. ASPIRIN [Concomitant]
  3. CLOPIDOGREL [Concomitant]
  4. DILTIAZEM [Concomitant]
  5. EZETIMIBE [Concomitant]
  6. FINASTERIDE [Concomitant]
  7. FOLIC ACID [Concomitant]
  8. LORTAB [Concomitant]
  9. ISOSORBIDE [Concomitant]
  10. LISINOPRIL [Concomitant]
  11. METFORMIN HCL [Concomitant]
  12. METOCLOPRAMIDE [Concomitant]
  13. METOPROLOL SUCCINATE [Concomitant]
  14. OMEPRAZOLE [Concomitant]
  15. SIMVASTATIN [Concomitant]
  16. TERAZOSIN HCL [Concomitant]

REACTIONS (2)
  - DRUG TOXICITY [None]
  - EPISTAXIS [None]
